FAERS Safety Report 5451365-3 (Version None)
Quarter: 2007Q3

REPORT INFORMATION
  Report Type: 
  Country: None (occurrence: None)
  Receive Date: 20070911
  Receipt Date: 20070911
  Transmission Date: 20080115
  Serious: Yes (Life-Threatening, Hospitalization)
  Sender: FDA-Public Use
  Company Number: None

PATIENT
  Sex: Female
  Weight: 53.5244 kg

DRUGS (2)
  1. METHOTREXATE [Suspect]
     Indication: MIXED CONNECTIVE TISSUE DISEASE
     Dosage: 30MG WEEKLY IM
     Route: 030
     Dates: start: 20030801, end: 20040101
  2. METHOTREXATE [Suspect]

REACTIONS (2)
  - HEPATIC FAILURE [None]
  - HEPATOCELLULAR DAMAGE [None]
